FAERS Safety Report 5046526-1 (Version None)
Quarter: 2006Q3

REPORT INFORMATION
  Report Type: 
  Country: None (occurrence: None)
  Receive Date: 20060705
  Receipt Date: 20060705
  Transmission Date: 20061208
  Serious: Yes (Hospitalization, Other)
  Sender: FDA-Public Use
  Company Number: None

PATIENT
  Age: 58 Year
  Sex: Male
  Weight: 97.5 kg

DRUGS (9)
  1. IBUPROFEN [Suspect]
     Indication: SELF-MEDICATION
     Dosage: OTC - PT SELF-ADMINISTRATION  (THERAPY DATES:  4 DAYS BEFORE ADMISSION)
  2. ASPIRIN [Concomitant]
  3. ACETAMINOPHEN [Concomitant]
  4. FELODIPINE [Concomitant]
  5. GLIPIZIDE [Concomitant]
  6. LISINOPRIL [Concomitant]
  7. SERTRALINE [Concomitant]
  8. VARDENAFIL [Concomitant]
  9. HC CREAM [Concomitant]

REACTIONS (5)
  - DIZZINESS [None]
  - DYSPNOEA EXERTIONAL [None]
  - FATIGUE [None]
  - GASTROINTESTINAL HAEMORRHAGE [None]
  - MELAENA [None]
